FAERS Safety Report 4870211-X (Version None)
Quarter: 2005Q4

REPORT INFORMATION
  Report Type: 
  Country: None (occurrence: None)
  Receive Date: 20051228
  Receipt Date: 20051216
  Transmission Date: 20060501
  Serious: Yes (Hospitalization)
  Sender: FDA-Public Use
  Company Number: 200510669BYL

PATIENT
  Age: 64 Year
  Sex: Male

DRUGS (3)
  1. ADALAT [Suspect]
     Dosage: ORAL
     Route: 048
  2. ALFAROL (ALFACALCIDOL) [Suspect]
  3. LANSOPRAZOLE [Suspect]

REACTIONS (3)
  - EOSINOPHIL COUNT INCREASED [None]
  - ICHTHYOSIS ACQUIRED [None]
  - SKIN EXFOLIATION [None]
